FAERS Safety Report 9039980 (Version 1)
Quarter: 2013Q1

REPORT INFORMATION
  Report Type: Spontaneous
  Country: IT (occurrence: IT)
  Receive Date: 20130130
  Receipt Date: 20130130
  Transmission Date: 20140127
  Serious: Yes (Death, Other)
  Sender: FDA-Public Use
  Company Number: IT-BRISTOL-MYERS SQUIBB COMPANY-17284977

PATIENT
  Age: 80 Year
  Sex: Female

DRUGS (11)
  1. COUMADIN TABS 5 MG [Suspect]
     Route: 048
     Dates: start: 20100101, end: 20130110
  2. SODIUM BICARBONATE [Concomitant]
     Dosage: 1DF: 2 UNITS
  3. LANSOPRAZOLE [Concomitant]
  4. CALCITRIOL [Concomitant]
  5. ZYLORIC [Concomitant]
     Dosage: 300 MG TABS
  6. CONGESCOR [Concomitant]
     Dosage: TABS
  7. KANRENOL [Concomitant]
     Dosage: TABS
  8. SPIRIVA [Concomitant]
     Dosage: TABS
  9. ESKIM [Concomitant]
     Dosage: TABS
  10. LASIX [Concomitant]
     Dosage: 25 MG TABS
  11. CALCIUM FOLINATE [Concomitant]
     Dosage: TABS

REACTIONS (2)
  - Cerebral haemorrhage [Fatal]
  - Blood potassium decreased [Unknown]
